FAERS Safety Report 23340798 (Version 1)
Quarter: 2023Q4

REPORT INFORMATION
  Report Type: Report from Study
  Country: MX (occurrence: MX)
  Receive Date: 20231227
  Receipt Date: 20231227
  Transmission Date: 20240109
  Serious: Yes (Other)
  Sender: FDA-Public Use
  Company Number: MX-BIOVITRUM-2023-MX-021419

PATIENT
  Age: 102 Day
  Sex: Female
  Weight: 4.3 kg

DRUGS (3)
  1. SYNAGIS [Suspect]
     Active Substance: PALIVIZUMAB
     Indication: Antiviral prophylaxis
     Dosage: 0.6 ML, MONTHLY
     Route: 030
     Dates: start: 20231017, end: 20231017
  2. SYNAGIS [Suspect]
     Active Substance: PALIVIZUMAB
     Dosage: 0.7 ML, MONTHLY
     Route: 030
     Dates: start: 20231121, end: 20231121
  3. SYNAGIS [Suspect]
     Active Substance: PALIVIZUMAB
     Dosage: 0.7 ML, MONTHLY
     Route: 030
     Dates: start: 20231213, end: 20231213

REACTIONS (1)
  - Crying [Recovered/Resolved]

NARRATIVE: CASE EVENT DATE: 20231213
